FAERS Safety Report 6465086-1 (Version None)
Quarter: 2009Q4

REPORT INFORMATION
  Report Type: 
  Country: None (occurrence: None)
  Receive Date: 20091105
  Receipt Date: 20091029
  Transmission Date: 20100525
  Serious: Yes (Hospitalization)
  Sender: FDA-Public Use
  Company Number: 2009GR_BP3193

PATIENT
  Age: 12 Year
  Sex: Female

DRUGS (1)
  1. TERBINAFINE HCL [Suspect]
     Indication: ONYCHOMYCOSIS
     Dosage: 250 MG (250 MG) ORAL
     Route: 048
     Dates: start: 20090820, end: 20090822

REACTIONS (7)
  - ABNORMAL SENSATION IN EYE [None]
  - ARRHYTHMIA [None]
  - BLOOD PRESSURE FLUCTUATION [None]
  - CARDIOVASCULAR DISORDER [None]
  - DIZZINESS [None]
  - TACHYCARDIA [None]
  - VISUAL IMPAIRMENT [None]
